FAERS Safety Report 20431731 (Version 1)
Quarter: 2022Q1

REPORT INFORMATION
  Report Type: Spontaneous
  Country: CN (occurrence: None)
  Receive Date: 20220204
  Receipt Date: 20220204
  Transmission Date: 20220424
  Serious: Yes (Hospitalization)
  Sender: FDA-Public Use
  Company Number: 2022A055530

PATIENT
  Age: 68 Year
  Sex: Female
  Weight: 55.3 kg

DRUGS (3)
  1. DURVALUMAB [Suspect]
     Active Substance: DURVALUMAB
     Indication: Lung adenocarcinoma
     Route: 042
     Dates: start: 20211113, end: 20211113
  2. ETOPOSIDE [Concomitant]
     Active Substance: ETOPOSIDE
     Indication: Lung adenocarcinoma
     Route: 041
     Dates: start: 20211113, end: 20211115
  3. CISPLATIN [Concomitant]
     Active Substance: CISPLATIN
     Indication: Lung adenocarcinoma
     Route: 041
     Dates: start: 20211113, end: 20211115

REACTIONS (2)
  - Hepatic function abnormal [Recovering/Resolving]
  - Renal impairment [Recovering/Resolving]

NARRATIVE: CASE EVENT DATE: 20211206
